FAERS Safety Report 20074132 (Version 1)
Quarter: 2021Q4

REPORT INFORMATION
  Report Type: Spontaneous
  Country: CN (occurrence: CN)
  Receive Date: 20211116
  Receipt Date: 20211116
  Transmission Date: 20220303
  Serious: Yes (Hospitalization, Other)
  Sender: FDA-Public Use
  Company Number: CN-GLAXOSMITHKLINE-CNCH2021GSK081778

PATIENT
  Age: 78 Year
  Sex: Male

DRUGS (1)
  1. DICLOFENAC SODIUM [Suspect]
     Active Substance: DICLOFENAC SODIUM
     Indication: Pain
     Dosage: UNK

REACTIONS (7)
  - Hyponatraemia [Recovered/Resolved]
  - Disease recurrence [Recovered/Resolved]
  - Pancreatic neuroendocrine tumour [Unknown]
  - Cardiac failure [Unknown]
  - Hypopituitarism [Unknown]
  - Renin decreased [Unknown]
  - Blood aldosterone decreased [Unknown]
